FAERS Safety Report 26112889 (Version 1)
Quarter: 2025Q4

REPORT INFORMATION
  Report Type: Spontaneous
  Country: EU (occurrence: EU)
  Receive Date: 20251202
  Receipt Date: 20251202
  Transmission Date: 20260118
  Serious: Yes (Other)
  Sender: MYLAN
  Company Number: EU-002147023-NVSC2025PT174753

PATIENT
  Age: 50 Year
  Sex: Male

DRUGS (1)
  1. FINGOLIMOD [Suspect]
     Active Substance: FINGOLIMOD
     Indication: Product used for unknown indication
     Dosage: UNK

REACTIONS (3)
  - Condition aggravated [Unknown]
  - Central nervous system lesion [Unknown]
  - Lymphopenia [Unknown]
